FAERS Safety Report 7146302 (Version 4)
Quarter: 2015Q1

REPORT INFORMATION
  Report Type: Spontaneous
  Country: US (occurrence: US)
  Receive Date: 20091012
  Receipt Date: 20150313
  Transmission Date: 20150721
  Serious: Yes (Other)
  Sender: FDA-Public Use
  Company Number: US-ASTRAZENECA-2009SE06111

PATIENT
  Age: 83 Year
  Sex: Female
  Weight: 61.2 kg

DRUGS (21)
  1. SYMBICORT [Suspect]
     Active Substance: BUDESONIDE\FORMOTEROL FUMARATE DIHYDRATE
     Indication: DYSPNOEA
     Dosage: 160/4.5 MCG (2 PUFFS TWICE A DAY)
     Route: 055
  2. BUMETANIDE. [Concomitant]
     Active Substance: BUMETANIDE
  3. NIFEREX [Concomitant]
     Active Substance: IRON\POLYSACCHARIDES
  4. SYMBICORT [Suspect]
     Active Substance: BUDESONIDE\FORMOTEROL FUMARATE DIHYDRATE
     Indication: DYSPNOEA
     Dosage: 160/4.5 MCG (2 PUFFS TWICE A DAY)
     Route: 055
  5. SYMBICORT [Suspect]
     Active Substance: BUDESONIDE\FORMOTEROL FUMARATE DIHYDRATE
     Indication: BRONCHITIS
     Dosage: 160/4.5 MCG (2 PUFFS TWICE A DAY)
     Route: 055
  6. SYMBICORT [Suspect]
     Active Substance: BUDESONIDE\FORMOTEROL FUMARATE DIHYDRATE
     Indication: ASTHMA
     Dosage: 80/4.5 2 PUFFS BID
     Route: 055
     Dates: start: 2010
  7. SPIRONOLACTONE. [Concomitant]
     Active Substance: SPIRONOLACTONE
  8. SYMBICORT [Suspect]
     Active Substance: BUDESONIDE\FORMOTEROL FUMARATE DIHYDRATE
     Indication: ASTHMA
     Dosage: 160/4.5 MCG (2 PUFFS TWICE A DAY)
     Route: 055
  9. CODEINE [Concomitant]
     Active Substance: CODEINE
  10. PLAVIX [Concomitant]
     Active Substance: CLOPIDOGREL BISULFATE
  11. SYMBICORT [Suspect]
     Active Substance: BUDESONIDE\FORMOTEROL FUMARATE DIHYDRATE
     Indication: BRONCHITIS
     Dosage: 80/4.5 2 PUFFS BID
     Route: 055
     Dates: start: 2010
  12. COMBIVENT [Concomitant]
     Active Substance: ALBUTEROL SULFATE\IPRATROPIUM BROMIDE
  13. ISOSORBIDE [Concomitant]
     Active Substance: ISOSORBIDE
  14. SYMBICORT [Suspect]
     Active Substance: BUDESONIDE\FORMOTEROL FUMARATE DIHYDRATE
     Indication: DYSPNOEA
     Dosage: 80/4.5 2 PUFFS BID
     Route: 055
     Dates: start: 2010
  15. ALBUTEROL. [Concomitant]
     Active Substance: ALBUTEROL
  16. LIPITOR [Concomitant]
     Active Substance: ATORVASTATIN CALCIUM
  17. SYMBICORT [Suspect]
     Active Substance: BUDESONIDE\FORMOTEROL FUMARATE DIHYDRATE
     Indication: BRONCHITIS
     Dosage: 160/4.5 MCG (2 PUFFS TWICE A DAY)
     Route: 055
  18. SYMBICORT [Suspect]
     Active Substance: BUDESONIDE\FORMOTEROL FUMARATE DIHYDRATE
     Indication: ASTHMA
     Dosage: 160/4.5 MCG (2 PUFFS TWICE A DAY)
     Route: 055
  19. IPRATROPIUM BROMIDE. [Concomitant]
     Active Substance: IPRATROPIUM BROMIDE
  20. COZAAR [Concomitant]
     Active Substance: LOSARTAN POTASSIUM
  21. POTASSIUM CHLORIDE. [Concomitant]
     Active Substance: POTASSIUM CHLORIDE

REACTIONS (11)
  - Eye disorder [Unknown]
  - Cardiac disorder [Unknown]
  - Circumstance or information capable of leading to medication error [Unknown]
  - Device misuse [Unknown]
  - Intentional product misuse [Unknown]
  - Drug ineffective [Unknown]
  - Aortic stenosis [Not Recovered/Not Resolved]
  - Malaise [Recovering/Resolving]
  - Dyspnoea [Recovering/Resolving]
  - Asthma [Recovering/Resolving]
  - Drug dose omission [Unknown]

NARRATIVE: CASE EVENT DATE: 2010
